FAERS Safety Report 9283270 (Version 1)
Quarter: 2013Q2

REPORT INFORMATION
  Report Type: Spontaneous
  Country: US (occurrence: US)
  Receive Date: 20130510
  Receipt Date: 20130510
  Transmission Date: 20140414
  Serious: No
  Sender: FDA-Public Use
  Company Number: US-GLAXOSMITHKLINE-A0993728A

PATIENT
  Age: 65 Year
  Sex: Female
  Weight: 81.8 kg

DRUGS (4)
  1. TYKERB [Suspect]
     Indication: BREAST CANCER
     Route: 065
     Dates: start: 201204, end: 201208
  2. XELODA [Concomitant]
  3. HYDROCHLOROTHIAZIDE [Concomitant]
  4. NEXIUM [Concomitant]

REACTIONS (3)
  - Rash [Unknown]
  - Pain in extremity [Unknown]
  - Drug ineffective [Unknown]
